FAERS Safety Report 11204694 (Version 1)
Quarter: 2015Q2

REPORT INFORMATION
  Report Type: Spontaneous
  Country: BR (occurrence: BR)
  Receive Date: 20150622
  Receipt Date: 20150622
  Transmission Date: 20150821
  Serious: Yes (Death, Hospitalization, Other)
  Sender: FDA-Public Use
  Company Number: BR-ABBVIE-15K-020-1412062-00

PATIENT
  Age: 20 Year
  Sex: Female

DRUGS (1)
  1. HUMIRA [Suspect]
     Active Substance: ADALIMUMAB
     Indication: ANKYLOSING SPONDYLITIS
     Route: 065
     Dates: start: 201409, end: 2015

REACTIONS (5)
  - Feeling abnormal [Fatal]
  - Condition aggravated [Fatal]
  - Pleural fibrosis [Fatal]
  - Tuberculosis [Fatal]
  - Respiratory disorder [Fatal]

NARRATIVE: CASE EVENT DATE: 2015
